FAERS Safety Report 13751279 (Version 1)
Quarter: 2017Q3

REPORT INFORMATION
  Report Type: Spontaneous
  Country: US (occurrence: US)
  Receive Date: 20170713
  Receipt Date: 20170713
  Transmission Date: 20171127
  Serious: No
  Sender: FDA-Public Use
  Company Number: US-ASTELLAS-2017US013330

PATIENT
  Age: 78 Year
  Sex: Female

DRUGS (2)
  1. MYRBETRIQ [Suspect]
     Active Substance: MIRABEGRON
     Indication: PRODUCT USED FOR UNKNOWN INDICATION
     Dosage: 25 MG, TWICE DAILY (ONE TABLET IN THE MORNING AND ONE AT THE NIGHT)
     Route: 065
  2. MYRBETRIQ [Suspect]
     Active Substance: MIRABEGRON
     Dosage: 50 MG (TWO 25 MG TABLETS), ONCE DAILY
     Route: 065
     Dates: start: 20170404

REACTIONS (6)
  - Intentional product misuse [Unknown]
  - Drug ineffective [Unknown]
  - Urine output increased [Unknown]
  - Inappropriate schedule of drug administration [Unknown]
  - Visual impairment [Unknown]
  - Urine output decreased [Unknown]
